FAERS Safety Report 24601930 (Version 2)
Quarter: 2024Q4

REPORT INFORMATION
  Report Type: Spontaneous
  Country: US (occurrence: US)
  Receive Date: 20241111
  Receipt Date: 20241203
  Transmission Date: 20250114
  Serious: No
  Sender: ALEXION PHARMACEUTICALS
  Company Number: US-AstraZeneca-CH-00738487A

PATIENT
  Age: 9 Year

DRUGS (12)
  1. STRENSIQ [Suspect]
     Active Substance: ASFOTASE ALFA
     Indication: Hypophosphatasia
     Dosage: UNK UNK, TIW
  2. STRENSIQ [Suspect]
     Active Substance: ASFOTASE ALFA
     Dosage: UNK UNK, TIW
  3. STRENSIQ [Suspect]
     Active Substance: ASFOTASE ALFA
     Dosage: UNK UNK, TIW
  4. STRENSIQ [Suspect]
     Active Substance: ASFOTASE ALFA
     Dosage: UNK UNK, TIW
  5. STRENSIQ [Suspect]
     Active Substance: ASFOTASE ALFA
     Dosage: UNK, SIX TIMES/WEEK
  6. STRENSIQ [Suspect]
     Active Substance: ASFOTASE ALFA
     Dosage: UNK, SIX TIMES/WEEK
  7. STRENSIQ [Suspect]
     Active Substance: ASFOTASE ALFA
     Dosage: UNK, SIX TIMES/WEEK
  8. STRENSIQ [Suspect]
     Active Substance: ASFOTASE ALFA
     Dosage: UNK, SIX TIMES/WEEK
  9. STRENSIQ [Suspect]
     Active Substance: ASFOTASE ALFA
     Dosage: UNK UNK, 2 TIMES A WEEK
  10. STRENSIQ [Suspect]
     Active Substance: ASFOTASE ALFA
     Dosage: UNK UNK, 2 TIMES A WEEK
  11. STRENSIQ [Suspect]
     Active Substance: ASFOTASE ALFA
     Dosage: UNK UNK, 2 TIMES A WEEK
  12. STRENSIQ [Suspect]
     Active Substance: ASFOTASE ALFA
     Dosage: UNK UNK, 2 TIMES A WEEK

REACTIONS (6)
  - Injection site reaction [Not Recovered/Not Resolved]
  - Injection site bruising [Not Recovered/Not Resolved]
  - Injection site discolouration [Not Recovered/Not Resolved]
  - Pain [Unknown]
  - Symptom recurrence [Unknown]
  - Incorrect dose administered [Unknown]
